FAERS Safety Report 5192406-0 (Version None)
Quarter: 2006Q4

REPORT INFORMATION
  Report Type: 
  Country: None (occurrence: None)
  Receive Date: 20061227
  Receipt Date: 20061215
  Transmission Date: 20070319
  Serious: Yes (Other)
  Sender: FDA-Public Use
  Company Number: US-PFIZER INC-2006155076

PATIENT
  Sex: Male

DRUGS (1)
  1. ATGAM [Suspect]

REACTIONS (2)
  - APLASTIC ANAEMIA [None]
  - SKIN TEST POSITIVE [None]
